FAERS Safety Report 12689108 (Version 1)
Quarter: 2016Q3

REPORT INFORMATION
  Report Type: Spontaneous
  Country: US (occurrence: None)
  Receive Date: 20160825
  Receipt Date: 20160825
  Transmission Date: 20161109
  Serious: Yes (Hospitalization)
  Sender: FDA-Public Use
  Company Number: None

PATIENT
  Age: 55 Year
  Sex: Female

DRUGS (17)
  1. FAMOTIDINE. [Concomitant]
     Active Substance: FAMOTIDINE
  2. CALCIUM + D3 [Concomitant]
     Active Substance: CALCIUM\CHOLECALCIFEROL
  3. METHYLPRED [Concomitant]
     Active Substance: METHYLPREDNISOLONE
  4. ORENCIA [Suspect]
     Active Substance: ABATACEPT
     Indication: RHEUMATOID ARTHRITIS
     Route: 058
     Dates: start: 201202
  5. DICYCLOMINE [Concomitant]
     Active Substance: DICYCLOMINE HYDROCHLORIDE
  6. PROAIR HFA [Concomitant]
     Active Substance: ALBUTEROL SULFATE
  7. DULOXETINE. [Concomitant]
     Active Substance: DULOXETINE
  8. BUPROPION. [Concomitant]
     Active Substance: BUPROPION
  9. GABAPENTIN. [Concomitant]
     Active Substance: GABAPENTIN
  10. LORATADINE. [Concomitant]
     Active Substance: LORATADINE
  11. LAMOTRIGINE. [Concomitant]
     Active Substance: LAMOTRIGINE
  12. TIZANIDINE. [Concomitant]
     Active Substance: TIZANIDINE
  13. VITAMIN D3 [Concomitant]
     Active Substance: CHOLECALCIFEROL
  14. FAMOTIDINE. [Concomitant]
     Active Substance: FAMOTIDINE
  15. OXYCODONE [Concomitant]
     Active Substance: OXYCODONE
  16. SYNTHROID [Concomitant]
     Active Substance: LEVOTHYROXINE SODIUM
  17. LABETALOL [Concomitant]
     Active Substance: LABETALOL\LABETALOL HYDROCHLORIDE

REACTIONS (5)
  - Headache [None]
  - Pneumonia [None]
  - Loss of consciousness [None]
  - Drug dose omission [None]
  - Dizziness [None]

NARRATIVE: CASE EVENT DATE: 201607
